FAERS Safety Report 20797625 (Version 1)
Quarter: 2022Q2

REPORT INFORMATION
  Report Type: Spontaneous
  Country: CN (occurrence: CN)
  Receive Date: 20220506
  Receipt Date: 20220506
  Transmission Date: 20220721
  Serious: Yes (Other)
  Sender: FDA-Public Use
  Company Number: CN-ELI_LILLY_AND_COMPANY-CN202205000472

PATIENT
  Age: 58 Year
  Sex: Male
  Weight: 105 kg

DRUGS (15)
  1. PEMETREXED [Suspect]
     Active Substance: PEMETREXED
     Indication: Peritoneal mesothelioma malignant
     Dosage: 900 MG,DAY 1 FIRST CYCLE
     Route: 065
  2. PEMETREXED [Suspect]
     Active Substance: PEMETREXED
     Dosage: 900 MG,DAY 1 SECOND CYCLE
     Route: 065
     Dates: start: 20210326
  3. PEMETREXED [Suspect]
     Active Substance: PEMETREXED
     Dosage: 700 MG, DAY 1 THIRD CYCLE
     Route: 065
     Dates: start: 20210424
  4. PEMETREXED [Suspect]
     Active Substance: PEMETREXED
     Dosage: 700 MG, DAY 1, FOURTH CYCLE
     Route: 065
     Dates: start: 20210522
  5. CISPLATIN [Suspect]
     Active Substance: CISPLATIN
     Indication: Peritoneal mesothelioma malignant
     Dosage: 50 MG, FIRST CYCLE DAY 1 AND 2
     Route: 065
     Dates: start: 20210305
  6. CISPLATIN [Suspect]
     Active Substance: CISPLATIN
     Dosage: 30 MG, FIRST CYCLE DAY 3
     Route: 065
     Dates: start: 202103
  7. CISPLATIN [Suspect]
     Active Substance: CISPLATIN
     Dosage: 50 MG, SECOND CYCLE DAY 1 AND 2
     Route: 065
     Dates: start: 20210326
  8. CISPLATIN [Suspect]
     Active Substance: CISPLATIN
     Dosage: 30 MG, SECOND CYCLE DAY 3
     Route: 065
     Dates: start: 202103
  9. CISPLATIN [Suspect]
     Active Substance: CISPLATIN
     Dosage: 40 MG, THIRD CYCLE DAY 1
     Route: 065
     Dates: start: 20210424
  10. CISPLATIN [Suspect]
     Active Substance: CISPLATIN
     Dosage: 30 MG, DAY 2 AND 3
     Dates: start: 202104
  11. CISPLATIN [Suspect]
     Active Substance: CISPLATIN
     Dosage: 40 MG, FOURTH CYCLE DAY 1
     Route: 065
     Dates: start: 20210522
  12. CISPLATIN [Suspect]
     Active Substance: CISPLATIN
     Dosage: 30 MG, DAY 2 AND 3
     Route: 065
     Dates: start: 202105
  13. BEVACIZUMAB [Suspect]
     Active Substance: BEVACIZUMAB
     Indication: Peritoneal mesothelioma malignant
     Dosage: 400 MG, FIRST CYCLE DAY 0
     Route: 065
     Dates: start: 20210305
  14. BEVACIZUMAB [Suspect]
     Active Substance: BEVACIZUMAB
     Dosage: 400 MG, SECOND CYCLE DAY 0
     Route: 065
     Dates: start: 20210326
  15. BEVACIZUMAB [Suspect]
     Active Substance: BEVACIZUMAB
     Dosage: 400 MG, THIRD CYCLE DAY 0
     Route: 065
     Dates: start: 20210424

REACTIONS (4)
  - Immunodeficiency [Recovered/Resolved]
  - Dysphagia [Recovered/Resolved]
  - Myelosuppression [Recovered/Resolved]
  - Off label use [Unknown]
